FAERS Safety Report 10846714 (Version 1)
Quarter: 2015Q1

REPORT INFORMATION
  Report Type: Report from Study
  Country: US (occurrence: US)
  Receive Date: 20150220
  Receipt Date: 20150220
  Transmission Date: 20150721
  Serious: Yes (Other)
  Sender: FDA-Public Use
  Company Number: US-CELGENE-163-21880-12083085

PATIENT
  Age: 36 Year
  Sex: Male
  Weight: 100 kg

DRUGS (4)
  1. REVLIMID [Suspect]
     Active Substance: LENALIDOMIDE
     Route: 048
     Dates: start: 20111128, end: 20111205
  2. TACROLIMUS. [Concomitant]
     Active Substance: TACROLIMUS
     Dosage: INCREASED
     Route: 065
     Dates: start: 20111206
  3. REVLIMID [Suspect]
     Active Substance: LENALIDOMIDE
     Indication: ACUTE MYELOID LEUKAEMIA
     Route: 048
     Dates: start: 20111031
  4. TACROLIMUS. [Concomitant]
     Active Substance: TACROLIMUS
     Indication: PRODUCT USED FOR UNKNOWN INDICATION
     Dosage: DECREASED
     Route: 065
     Dates: end: 20111128

REACTIONS (1)
  - Acute graft versus host disease in skin [Unknown]

NARRATIVE: CASE EVENT DATE: 20111203
